FAERS Safety Report 16594564 (Version 1)
Quarter: 2019Q3

REPORT INFORMATION
  Report Type: Other
  Country: US (occurrence: US)
  Receive Date: 20190718
  Receipt Date: 20190718
  Transmission Date: 20191004
  Serious: No
  Sender: FDA-Public Use
  Company Number: US-SWEDISH ORPHAN BIOVITRUM-2019US0418

PATIENT
  Sex: Male

DRUGS (35)
  1. GABAPENTIN. [Concomitant]
     Active Substance: GABAPENTIN
  2. STOOL SOFTENER (DOCUSATE) [Concomitant]
     Active Substance: DOCUSATE
  3. ASPIRIN. [Concomitant]
     Active Substance: ASPIRIN
     Dosage: LOW DOSE
  4. PRADAXA [Concomitant]
     Active Substance: DABIGATRAN ETEXILATE MESYLATE
  5. CORGARD [Concomitant]
     Active Substance: NADOLOL
  6. HYTRIN [Concomitant]
     Active Substance: TERAZOSIN HYDROCHLORIDE
  7. LOTENSIN [Concomitant]
     Active Substance: BENAZEPRIL HYDROCHLORIDE
  8. MULTIVITAMIN [Concomitant]
     Active Substance: VITAMINS
  9. IRON [Concomitant]
     Active Substance: IRON
  10. CHONDROITIN [Concomitant]
     Active Substance: CHONDROITIN
  11. TYLENOL [Concomitant]
     Active Substance: ACETAMINOPHEN
  12. TRAMADOL. [Concomitant]
     Active Substance: TRAMADOL
  13. OMEGA 3 [Concomitant]
     Active Substance: OMEGA-3 FATTY ACIDS
  14. ULORIC [Concomitant]
     Active Substance: FEBUXOSTAT
  15. HUMALOG [Concomitant]
     Active Substance: INSULIN LISPRO
  16. PRESERVISION [Concomitant]
     Active Substance: MINERALS\VITAMINS
  17. TIMOLOL. [Concomitant]
     Active Substance: TIMOLOL
  18. FLAXSEED [Concomitant]
     Active Substance: FLAX SEED
  19. SELENIUM [Concomitant]
     Active Substance: SELENIUM
  20. KINERET [Suspect]
     Active Substance: ANAKINRA
     Route: 058
     Dates: start: 20190214
  21. KCL [Concomitant]
     Active Substance: POTASSIUM CHLORIDE
  22. ATORVASTATIN [Concomitant]
     Active Substance: ATORVASTATIN
  23. ISOSORBIDE MONO [Concomitant]
  24. LANTUS [Concomitant]
     Active Substance: INSULIN GLARGINE
  25. METOLAZONE. [Concomitant]
     Active Substance: METOLAZONE
     Dosage: AS NEEDED
  26. FISH OIL [Concomitant]
     Active Substance: FISH OIL
  27. GLUCOSAMINE [Concomitant]
     Active Substance: GLUCOSAMINE
  28. COLCHRIS [Concomitant]
  29. CYMBALTA [Concomitant]
     Active Substance: DULOXETINE HYDROCHLORIDE
  30. PAXIL [Concomitant]
     Active Substance: PAROXETINE HYDROCHLORIDE
  31. BRIMONIDINE [Concomitant]
     Active Substance: BRIMONIDINE TARTRATE
  32. VITAMIN D3 [Concomitant]
     Active Substance: CHOLECALCIFEROL
  33. VITAMIN B COMPLEX [Concomitant]
     Active Substance: CYANOCOBALAMIN\DEXPANTHENOL\NIACINAMIDE\PYRIDOXINE HYDROCHLORIDE\RIBOFLAVIN 5^-PHOSPHATE SODIUM\THIAMINE HYDROCHLORIDE\VITAMIN B COMPLEX
  34. LASIX [Concomitant]
     Active Substance: FUROSEMIDE
  35. LATANOPROST. [Concomitant]
     Active Substance: LATANOPROST

REACTIONS (1)
  - Injection site pruritus [Recovered/Resolved]
